FAERS Safety Report 8812676 (Version 2)
Quarter: 2012Q4

REPORT INFORMATION
  Report Type: 
  Country: FR (occurrence: FR)
  Receive Date: 20120927
  Receipt Date: 20121003
  Transmission Date: 20130627
  Serious: Yes (Hospitalization)
  Sender: FDA-Public Use
  Company Number: PHHY2012FR082767

PATIENT
  Age: 59 Year
  Sex: Female

DRUGS (9)
  1. PACLITAXEL [Suspect]
     Indication: BREAST CANCER
     Dosage: 90 mg/m2, UNK
     Route: 042
     Dates: start: 20111215
  2. PACLITAXEL [Suspect]
     Dosage: 90 mg/m2, UNK
     Route: 042
  3. PACLITAXEL [Suspect]
     Dosage: 90 mg/m2, UNK
     Route: 042
  4. PACLITAXEL [Suspect]
     Dosage: 90 mg/m2, UNK
     Route: 042
     Dates: end: 20120426
  5. AVASTIN [Suspect]
     Indication: BREAST CANCER
     Dosage: 10 mg/m2, UNK
     Route: 042
     Dates: start: 20111215, end: 20120412
  6. ONDANSETRON [Concomitant]
     Dosage: 8 mg, UNK
     Route: 042
  7. RANITIDINE [Concomitant]
     Dosage: 50 mg, UNK
     Route: 042
  8. POLARAMINE [Concomitant]
     Dosage: 1 DF, UNK
  9. METHYLPREDNISOLONE [Concomitant]
     Dosage: 120 mg, UNK
     Route: 042

REACTIONS (4)
  - General physical health deterioration [Recovered/Resolved]
  - Somnolence [Unknown]
  - Onycholysis [Recovered/Resolved]
  - Asthenia [Unknown]
